FAERS Safety Report 13136045 (Version 1)
Quarter: 2017Q1

REPORT INFORMATION
  Report Type: Report from Study
  Country: US (occurrence: US)
  Receive Date: 20170120
  Receipt Date: 20170120
  Transmission Date: 20170428
  Serious: Yes (Hospitalization, Other)
  Sender: FDA-Public Use
  Company Number: US-BIOGEN-2014BI019031

PATIENT
  Age: 50 Year
  Sex: Female

DRUGS (11)
  1. VICODIN [Concomitant]
     Active Substance: ACETAMINOPHEN\HYDROCODONE BITARTRATE
     Indication: PRODUCT USED FOR UNKNOWN INDICATION
     Route: 065
  2. AMPYRA [Concomitant]
     Active Substance: DALFAMPRIDINE
     Indication: MULTIPLE SCLEROSIS
     Route: 065
     Dates: start: 20111217
  3. GILENYA [Concomitant]
     Active Substance: FINGOLIMOD HYDROCHLORIDE
     Indication: PRODUCT USED FOR UNKNOWN INDICATION
     Route: 065
  4. AMBIEN [Concomitant]
     Active Substance: ZOLPIDEM TARTRATE
     Indication: INSOMNIA
     Route: 065
     Dates: start: 20170104
  5. TECFIDERA [Suspect]
     Active Substance: DIMETHYL FUMARATE
     Indication: MULTIPLE SCLEROSIS
     Route: 065
     Dates: start: 20130806, end: 20130811
  6. TECFIDERA [Suspect]
     Active Substance: DIMETHYL FUMARATE
     Route: 065
     Dates: start: 20140710
  7. XANAX [Concomitant]
     Active Substance: ALPRAZOLAM
     Indication: PRODUCT USED FOR UNKNOWN INDICATION
     Route: 065
  8. SOLU-MEDROL [Concomitant]
     Active Substance: METHYLPREDNISOLONE SODIUM SUCCINATE
     Indication: PRODUCT USED FOR UNKNOWN INDICATION
     Route: 065
  9. ACTONEL [Concomitant]
     Active Substance: RISEDRONATE SODIUM
     Indication: MULTIPLE SCLEROSIS
     Route: 065
  10. TECFIDERA [Suspect]
     Active Substance: DIMETHYL FUMARATE
     Dates: start: 20140720, end: 20140910
  11. TECFIDERA [Suspect]
     Active Substance: DIMETHYL FUMARATE
     Route: 065
     Dates: start: 20140916

REACTIONS (42)
  - Cataract [Unknown]
  - Blindness [Unknown]
  - Muscle spasms [Unknown]
  - Fatigue [Not Recovered/Not Resolved]
  - Fall [Recovered/Resolved]
  - Visual impairment [Not Recovered/Not Resolved]
  - Dry eye [Not Recovered/Not Resolved]
  - Vulvovaginal dryness [Not Recovered/Not Resolved]
  - Gait disturbance [Not Recovered/Not Resolved]
  - Blepharitis [Unknown]
  - Suicidal ideation [Recovered/Resolved]
  - Hypersomnia [Unknown]
  - Photosensitivity reaction [Unknown]
  - Vomiting [Not Recovered/Not Resolved]
  - Malaise [Unknown]
  - Arteriosclerosis [Unknown]
  - Pain [Not Recovered/Not Resolved]
  - Intentional product use issue [Recovered/Resolved]
  - Drug effect decreased [Not Recovered/Not Resolved]
  - Eye irritation [Not Recovered/Not Resolved]
  - Burning sensation [Unknown]
  - Eye discharge [Unknown]
  - Headache [Not Recovered/Not Resolved]
  - Eye pain [Not Recovered/Not Resolved]
  - Eye swelling [Unknown]
  - Abdominal distension [Not Recovered/Not Resolved]
  - Halo vision [Not Recovered/Not Resolved]
  - Muscular weakness [Not Recovered/Not Resolved]
  - Memory impairment [Unknown]
  - General symptom [Unknown]
  - Pallor [Unknown]
  - Musculoskeletal disorder [Not Recovered/Not Resolved]
  - Multiple sclerosis [Unknown]
  - Vision blurred [Not Recovered/Not Resolved]
  - Photophobia [Not Recovered/Not Resolved]
  - Dry mouth [Not Recovered/Not Resolved]
  - Optic neuritis [Not Recovered/Not Resolved]
  - Loss of consciousness [Unknown]
  - Mucosal dryness [Not Recovered/Not Resolved]
  - Nasal dryness [Not Recovered/Not Resolved]
  - Mobility decreased [Unknown]
  - Nausea [Not Recovered/Not Resolved]

NARRATIVE: CASE EVENT DATE: 2014
